FAERS Safety Report 22267303 (Version 1)
Quarter: 2023Q2

REPORT INFORMATION
  Report Type: Spontaneous
  Country: ES (occurrence: ES)
  Receive Date: 20230428
  Receipt Date: 20230428
  Transmission Date: 20230722
  Serious: Yes (Death)
  Sender: FDA-Public Use
  Company Number: ES-SHIONOGI, INC-2023001027

PATIENT
  Age: 74 Year
  Sex: Male

DRUGS (9)
  1. FETROJA [Suspect]
     Active Substance: CEFIDEROCOL SULFATE TOSYLATE
     Indication: Salvage therapy
     Dosage: 1.5 G, 8 HOUR
     Route: 042
  2. FETROJA [Suspect]
     Active Substance: CEFIDEROCOL SULFATE TOSYLATE
     Indication: Pneumonia
  3. FETROJA [Suspect]
     Active Substance: CEFIDEROCOL SULFATE TOSYLATE
     Indication: Pseudomonas infection
  4. FETROJA [Suspect]
     Active Substance: CEFIDEROCOL SULFATE TOSYLATE
     Indication: Drug resistance
  5. FETROJA [Suspect]
     Active Substance: CEFIDEROCOL SULFATE TOSYLATE
     Indication: Bacteraemia
  6. COLISTIN [Suspect]
     Active Substance: COLISTIN
     Indication: Pneumonia
     Dosage: UNK
     Route: 065
  7. COLISTIN [Suspect]
     Active Substance: COLISTIN
     Indication: Bacteraemia
  8. COLISTIN [Suspect]
     Active Substance: COLISTIN
     Indication: Pseudomonas infection
  9. COLISTIN [Suspect]
     Active Substance: COLISTIN
     Indication: Drug resistance

REACTIONS (1)
  - Death [Fatal]
